FAERS Safety Report 23457870 (Version 1)
Quarter: 2024Q1

REPORT INFORMATION
  Report Type: Spontaneous
  Country: US (occurrence: US)
  Receive Date: 20240130
  Receipt Date: 20240130
  Transmission Date: 20240409
  Serious: No
  Sender: FDA-Public Use
  Company Number: US-MYLANLABS-2024M1007365

PATIENT
  Sex: Male
  Weight: 65.77 kg

DRUGS (2)
  1. LATANOPROST [Suspect]
     Active Substance: LATANOPROST
     Indication: Glaucoma
     Dosage: AT NIGHT ONE DROP IN EACH EYE, BEFORE BEDTIME
     Route: 047
     Dates: start: 20231215
  2. TIMOLOL MALEATE [Concomitant]
     Active Substance: TIMOLOL MALEATE
     Indication: Glaucoma
     Dosage: UNK
     Route: 065

REACTIONS (1)
  - Vision blurred [Unknown]
